FAERS Safety Report 5486754-4 (Version None)
Quarter: 2007Q4

REPORT INFORMATION
  Report Type: 
  Country: None (occurrence: None)
  Receive Date: 20071016
  Receipt Date: 20071012
  Transmission Date: 20080405
  Serious: Yes (Life-Threatening)
  Sender: FDA-Public Use
  Company Number: A0687543A

PATIENT
  Age: 38 Year
  Sex: Male

DRUGS (27)
  1. COREG [Suspect]
     Dosage: 6.25MG TWICE PER DAY
     Route: 048
     Dates: start: 20070824
  2. ARANESP [Concomitant]
  3. VENOFER [Concomitant]
  4. VITAMIN TAB [Concomitant]
  5. LISINOPRIL [Concomitant]
  6. UNSPECIFIED MEDICATION [Concomitant]
  7. PROTINEX [Concomitant]
  8. NICODERM [Concomitant]
  9. REGLAN [Concomitant]
  10. PROZAC [Concomitant]
  11. ATIVAN [Concomitant]
  12. IMODIUM [Concomitant]
  13. DULCOLAX [Concomitant]
  14. PULMICORT [Concomitant]
  15. MEGACE [Concomitant]
  16. MIRALAX [Concomitant]
  17. LIDOCAINE [Concomitant]
     Route: 050
  18. DILANTIN [Concomitant]
  19. DUONEB [Concomitant]
  20. TYLENOL EX [Concomitant]
  21. KLONOPIN [Concomitant]
  22. BENADRYL [Concomitant]
  23. VENTOLIN [Concomitant]
  24. RENAGEL [Concomitant]
  25. DARVOCET [Concomitant]
  26. DIGOXIN [Concomitant]
  27. NORVASC [Concomitant]

REACTIONS (3)
  - BLOOD POTASSIUM ABNORMAL [None]
  - CHEST DISCOMFORT [None]
  - CHEST PAIN [None]
